FAERS Safety Report 22083314 (Version 1)
Quarter: 2023Q1

REPORT INFORMATION
  Report Type: Spontaneous
  Country: BR (occurrence: BR)
  Receive Date: 20230310
  Receipt Date: 20230310
  Transmission Date: 20230418
  Serious: Yes (Life-Threatening, Hospitalization, Other)
  Sender: FDA-Public Use
  Company Number: None

PATIENT
  Age: 74 Year
  Sex: Male

DRUGS (8)
  1. VANCOMYCIN [Suspect]
     Active Substance: VANCOMYCIN
     Indication: Antibiotic therapy
     Dosage: 1 GRAM, Q2D (48 HOUR)
     Route: 042
     Dates: start: 2021
  2. MEROPENEM [Suspect]
     Active Substance: MEROPENEM
     Indication: Antibiotic therapy
     Dosage: 1 GRAM, BID, 12 HOURS
     Route: 042
     Dates: start: 2021
  3. AMIKACIN [Suspect]
     Active Substance: AMIKACIN
     Indication: Antibiotic therapy
     Dosage: 500 MILLIGRAM, QD, 24 HOUR
     Route: 042
     Dates: start: 2021
  4. CEFTRIAXONE [Suspect]
     Active Substance: CEFTRIAXONE
     Indication: Evidence based treatment
     Dosage: 1 GRAM, QD (24HOUR)
     Route: 042
     Dates: start: 202101
  5. DEXAMETHASONE [Suspect]
     Active Substance: DEXAMETHASONE
     Indication: COVID-19
     Dosage: 6 MILLIGRAM, QD, 24 HOUR, LASTED FOR EIGHT DAYS
     Route: 065
     Dates: start: 2021
  6. DEXAMETHASONE [Suspect]
     Active Substance: DEXAMETHASONE
     Dosage: 10 MILLIGRAM, QD, 24 HOUR, LASTED FOR EIGHT DAYS
     Route: 065
     Dates: start: 2021
  7. PREDNISONE [Suspect]
     Active Substance: PREDNISONE
     Indication: COVID-19
     Dosage: 40 MILLIGRAM, QD, 24 HOUR
     Route: 065
     Dates: start: 2021
  8. AZITHROMYCIN [Suspect]
     Active Substance: AZITHROMYCIN
     Indication: Evidence based treatment
     Dosage: 500 MILLIGRAM, QD, 24 HOUR
     Route: 048
     Dates: start: 202101

REACTIONS (2)
  - Urinary tract infection fungal [Unknown]
  - Trichosporon infection [Unknown]

NARRATIVE: CASE EVENT DATE: 20210101
